FAERS Safety Report 5369733-7 (Version None)
Quarter: 2007Q2

REPORT INFORMATION
  Report Type: 
  Country: None (occurrence: None)
  Receive Date: 20070625
  Receipt Date: 20070614
  Transmission Date: 20071010
  Serious: Yes (Hospitalization)
  Sender: FDA-Public Use
  Company Number: GB-PFIZER INC-2007049444

PATIENT
  Age: 55 Year
  Sex: Female

DRUGS (7)
  1. GABAPENTIN [Suspect]
  2. SEVOFLURANE [Suspect]
     Route: 055
  3. CODEINE SUL TAB [Concomitant]
  4. DEXAMETHASONE 0.5MG TAB [Concomitant]
  5. FENTANYL [Concomitant]
  6. OXYGEN [Concomitant]
     Route: 055
  7. ACETAMINOPHEN [Concomitant]

REACTIONS (2)
  - DYSTONIA [None]
  - MYOTONIA [None]
